FAERS Safety Report 9921739 (Version 1)
Quarter: 2014Q1

REPORT INFORMATION
  Report Type: Spontaneous
  Country: US (occurrence: US)
  Receive Date: 20140225
  Receipt Date: 20140225
  Transmission Date: 20141002
  Serious: Yes (Hospitalization)
  Sender: FDA-Public Use
  Company Number: US-MYLANLABS-2014S1003229

PATIENT
  Age: 88 Year
  Sex: Male

DRUGS (2)
  1. SOTALOL HYDROCHLORIDE TABLETS (AF) [Suspect]
     Indication: ARRHYTHMIA
     Route: 048
     Dates: start: 20140103, end: 20140202
  2. SOTALOL HYDROCHLORIDE TABLETS (AF) [Suspect]
     Indication: ARRHYTHMIA
     Route: 048
     Dates: start: 201402

REACTIONS (4)
  - Pulmonary oedema [Not Recovered/Not Resolved]
  - Asthenia [Not Recovered/Not Resolved]
  - Dyspnoea [Not Recovered/Not Resolved]
  - Drug dispensing error [Recovered/Resolved]
